FAERS Safety Report 19636347 (Version 1)
Quarter: 2021Q3

REPORT INFORMATION
  Report Type: Spontaneous
  Country: US (occurrence: US)
  Receive Date: 20210730
  Receipt Date: 20210730
  Transmission Date: 20211014
  Serious: Yes (Other)
  Sender: FDA-Public Use
  Company Number: US-GLAXOSMITHKLINE-US2021GSK162038

PATIENT
  Sex: Male

DRUGS (6)
  1. RANITIDINE HYDROCHLORIDE. [Suspect]
     Active Substance: RANITIDINE HYDROCHLORIDE
     Dosage: 150 MG, 2 TIMES PER DAY
     Route: 065
     Dates: start: 199407, end: 201909
  2. ZANTAC [Suspect]
     Active Substance: RANITIDINE HYDROCHLORIDE
     Dosage: 150 MG, 2 TIMES PER DAY
     Route: 065
     Dates: start: 199407, end: 201909
  3. ZANTAC [Suspect]
     Active Substance: RANITIDINE HYDROCHLORIDE
     Dosage: 150 MG BOTH, 2 TIMES PER DAY
     Route: 065
     Dates: start: 199407, end: 201909
  4. RANITIDINE HYDROCHLORIDE. [Suspect]
     Active Substance: RANITIDINE HYDROCHLORIDE
     Dosage: 150 MG, 2 TIMES PER DAY
     Route: 065
     Dates: start: 199407, end: 201909
  5. RANITIDINE. [Suspect]
     Active Substance: RANITIDINE
     Dosage: 150 MG, 2 TIMES PER DAY
     Route: 065
     Dates: start: 199407, end: 201909
  6. RANITIDINE CAPSULE [Suspect]
     Active Substance: RANITIDINE
     Dosage: 150 MG, 2 TIMES PER DAY
     Route: 065
     Dates: start: 199407, end: 201909

REACTIONS (1)
  - Pancreatic carcinoma [Unknown]
